FAERS Safety Report 9708750 (Version 1)
Quarter: 2013Q4

REPORT INFORMATION
  Report Type: Spontaneous
  Country: FR (occurrence: FR)
  Receive Date: 20131125
  Receipt Date: 20131125
  Transmission Date: 20140711
  Serious: Yes (Hospitalization)
  Sender: FDA-Public Use
  Company Number: FR-GLAXOSMITHKLINE-B0943574A

PATIENT
  Age: 51 Year
  Sex: Female

DRUGS (7)
  1. ARIXTRA [Suspect]
     Indication: PRODUCT USED FOR UNKNOWN INDICATION
     Route: 058
     Dates: start: 20130119, end: 20130206
  2. VINCRISTINE [Suspect]
     Indication: PRODUCT USED FOR UNKNOWN INDICATION
     Dosage: 2MG SEE DOSAGE TEXT
     Route: 042
     Dates: start: 20121219
  3. DAUNORUBICIN [Suspect]
     Indication: PRODUCT USED FOR UNKNOWN INDICATION
     Dosage: 50MGM2 SEE DOSAGE TEXT
     Route: 042
     Dates: start: 20121219
  4. KIDROLASE [Suspect]
     Indication: PRODUCT USED FOR UNKNOWN INDICATION
     Dosage: 11900UNIT SEE DOSAGE TEXT
     Route: 042
     Dates: start: 20121226, end: 20130111
  5. CALCIPARIN [Suspect]
     Indication: PRODUCT USED FOR UNKNOWN INDICATION
     Route: 058
     Dates: start: 20121227, end: 20130118
  6. ENDOXAN [Concomitant]
     Indication: PRODUCT USED FOR UNKNOWN INDICATION
     Dosage: 750MGM2 SEE DOSAGE TEXT
     Dates: start: 20121219
  7. GRANOCYTE [Concomitant]
     Indication: PRODUCT USED FOR UNKNOWN INDICATION
     Route: 042
     Dates: start: 20130103

REACTIONS (3)
  - Transaminases increased [Recovered/Resolved]
  - Gamma-glutamyltransferase increased [Unknown]
  - Hepatic function abnormal [Recovered/Resolved]
